FAERS Safety Report 9039693 (Version 1)
Quarter: 2013Q1

REPORT INFORMATION
  Report Type: Spontaneous
  Country: US (occurrence: US)
  Receive Date: 20130130
  Receipt Date: 20130130
  Transmission Date: 20140127
  Serious: No
  Sender: FDA-Public Use
  Company Number: US-ABBOTT-12P-163-0944720-00

PATIENT
  Sex: Female
  Weight: 113.5 kg

DRUGS (5)
  1. HUMIRA 40 MG/0.8 ML PEN [Suspect]
     Indication: CROHN^S DISEASE
     Dates: start: 201112, end: 201203
  2. HUMIRA 40 MG/0.8 ML PEN [Suspect]
     Dates: start: 201203, end: 201205
  3. PREDNISONE [Concomitant]
     Indication: CROHN^S DISEASE
  4. HYOSCYAMINE [Concomitant]
     Indication: ABDOMINAL RIGIDITY
  5. TYLENOL [Concomitant]
     Indication: PAIN

REACTIONS (1)
  - Crohn^s disease [Recovered/Resolved]
